FAERS Safety Report 9760536 (Version 1)
Quarter: 2013Q4

REPORT INFORMATION
  Report Type: Spontaneous
  Country: US (occurrence: US)
  Receive Date: 20131216
  Receipt Date: 20131216
  Transmission Date: 20140711
  Serious: No
  Sender: FDA-Public Use
  Company Number: US-BIOGENIDEC-2013BI100322

PATIENT
  Age: 60 Year
  Sex: Female

DRUGS (10)
  1. TECFIDERA [Suspect]
     Indication: MULTIPLE SCLEROSIS
     Route: 048
     Dates: start: 20130717, end: 20130830
  2. TECFIDERA [Suspect]
     Indication: MULTIPLE SCLEROSIS
     Route: 048
     Dates: start: 20130717, end: 20130830
  3. TECFIDERA [Suspect]
     Indication: MULTIPLE SCLEROSIS
     Route: 048
     Dates: start: 20130926, end: 20131106
  4. NORVASC [Concomitant]
  5. NITROSTAT [Concomitant]
  6. ZOFRAN [Concomitant]
  7. NORCO [Concomitant]
  8. ATIVAN [Concomitant]
  9. PRILOSEC [Concomitant]
  10. VITAMIN D3 [Concomitant]

REACTIONS (5)
  - Renal pain [Recovered/Resolved]
  - Chromaturia [Unknown]
  - Prescribed underdose [Unknown]
  - Haemorrhagic diathesis [Unknown]
  - Influenza like illness [Unknown]
